FAERS Safety Report 8021953-9 (Version None)
Quarter: 2012Q1

REPORT INFORMATION
  Report Type: 
  Country: None (occurrence: None)
  Receive Date: 20120104
  Receipt Date: 20111229
  Transmission Date: 20120608
  Serious: Yes (Hospitalization, Other)
  Sender: FDA-Public Use
  Company Number: PHHY2011HR113346

PATIENT
  Age: 47 Year
  Sex: Female
  Weight: 49 kg

DRUGS (5)
  1. VOLTAREN [Concomitant]
     Dosage: 50 MG, QD
     Route: 054
     Dates: start: 20110728
  2. NORMABEL (DIAZEPAM) [Concomitant]
     Indication: TENSION HEADACHE
     Dosage: 30 MG, UNK
     Route: 048
     Dates: start: 20110921
  3. REGLAN [Concomitant]
     Indication: PROPHYLAXIS OF NAUSEA AND VOMITING
     Dosage: 20 MG, QD
     Route: 048
     Dates: start: 20110310
  4. ZOLPIDEM TARTRATE [Suspect]
     Indication: INSOMNIA
     Dosage: 10 MG, QD
     Route: 048
     Dates: start: 20111021, end: 20111024
  5. AMITRIPTYLINE HCL [Interacting]
     Indication: INSOMNIA
     Dosage: 25 MG, QD
     Route: 048
     Dates: start: 20110510

REACTIONS (9)
  - CHILLS [None]
  - DRUG INTERACTION [None]
  - ELECTROENCEPHALOGRAM ABNORMAL [None]
  - HANGOVER [None]
  - TACHYCARDIA PAROXYSMAL [None]
  - STRABISMUS [None]
  - REFRACTION DISORDER [None]
  - DRY MOUTH [None]
  - MYOCLONUS [None]
